FAERS Safety Report 7740283-3 (Version None)
Quarter: 2011Q3

REPORT INFORMATION
  Report Type: 
  Country: None (occurrence: None)
  Receive Date: 20110909
  Receipt Date: 20110906
  Transmission Date: 20111222
  Serious: Yes (Hospitalization, Other)
  Sender: FDA-Public Use
  Company Number: US-TEVA-299428USA

PATIENT
  Sex: Female

DRUGS (1)
  1. ALENDRONIC ACID [Suspect]
     Indication: OSTEOPENIA
     Dosage: 10 MILLIGRAM;
     Dates: start: 20110306, end: 20110529

REACTIONS (9)
  - MALAISE [None]
  - JAUNDICE [None]
  - FEELING ABNORMAL [None]
  - ABDOMINAL PAIN UPPER [None]
  - FAECES DISCOLOURED [None]
  - PRURITUS GENERALISED [None]
  - URINE COLOUR ABNORMAL [None]
  - CHOLELITHIASIS [None]
  - BLOOD UREA ABNORMAL [None]
